FAERS Safety Report 18697680 (Version 10)
Quarter: 2022Q1

REPORT INFORMATION
  Report Type: Spontaneous
  Country: US (occurrence: US)
  Receive Date: 20210104
  Receipt Date: 20220225
  Transmission Date: 20220423
  Serious: Yes (Hospitalization)
  Sender: FDA-Public Use
  Company Number: US-CELGENE-USA-20201208705

PATIENT
  Age: 83 Year
  Sex: Female
  Weight: 61 kg

DRUGS (59)
  1. AZACITIDINE [Suspect]
     Active Substance: AZACITIDINE
     Indication: Acute myeloid leukaemia
     Route: 041
     Dates: start: 20180426, end: 20180502
  2. AZACITIDINE [Suspect]
     Active Substance: AZACITIDINE
     Route: 041
     Dates: start: 20210204, end: 20210210
  3. AZACITIDINE [Suspect]
     Active Substance: AZACITIDINE
     Route: 041
     Dates: start: 20210311
  4. VENETOCLAX [Concomitant]
     Active Substance: VENETOCLAX
     Indication: Acute myeloid leukaemia
     Dosage: 100 MILLIGRAM
     Route: 048
     Dates: start: 20180426, end: 20201226
  5. VENETOCLAX [Concomitant]
     Active Substance: VENETOCLAX
     Dosage: 200 MILLIGRAM
     Route: 048
     Dates: start: 20201228, end: 20210101
  6. VENETOCLAX [Concomitant]
     Active Substance: VENETOCLAX
     Dosage: 400 MILLIGRAM
     Route: 048
     Dates: start: 20210106, end: 20210107
  7. VENETOCLAX [Concomitant]
     Active Substance: VENETOCLAX
     Dosage: 400 MILLIGRAM
     Route: 048
     Dates: start: 20210204, end: 20210224
  8. VENETOCLAX [Concomitant]
     Active Substance: VENETOCLAX
     Dosage: 400 MILLIGRAM
     Route: 048
     Dates: start: 20210311
  9. CALCIUM CARBONATE [Concomitant]
     Active Substance: CALCIUM CARBONATE
     Indication: Gastrooesophageal reflux disease
     Route: 048
     Dates: start: 20180426
  10. ALLOPURINOL [Concomitant]
     Active Substance: ALLOPURINOL
     Indication: Prophylaxis
     Route: 048
     Dates: start: 20180426, end: 20180501
  11. SODIUM CHLORIDE [Concomitant]
     Active Substance: SODIUM CHLORIDE
     Indication: Prophylaxis
     Route: 041
     Dates: start: 20180426, end: 20180502
  12. SODIUM CHLORIDE [Concomitant]
     Active Substance: SODIUM CHLORIDE
     Indication: Clostridium difficile infection
     Route: 041
     Dates: start: 20190705, end: 20190705
  13. SODIUM CHLORIDE [Concomitant]
     Active Substance: SODIUM CHLORIDE
     Route: 041
     Dates: start: 2021
  14. ACETYLCYSTEINE [Concomitant]
     Active Substance: ACETYLCYSTEINE
     Indication: Chronic obstructive pulmonary disease
     Dosage: 600 MILLIGRAM
     Route: 048
     Dates: start: 201707
  15. ASPIRIN [Concomitant]
     Active Substance: ASPIRIN
     Indication: Coronary artery disease
     Dosage: 81 MILLIGRAM
     Route: 048
     Dates: start: 2015
  16. METOPROLOL [Concomitant]
     Active Substance: METOPROLOL
     Indication: Hypertension
     Dosage: 12.5 MILLIGRAM
     Route: 048
     Dates: start: 2014
  17. ZOLOFT [Concomitant]
     Active Substance: SERTRALINE HYDROCHLORIDE
     Indication: Depression
     Dosage: 50 MILLIGRAM
     Route: 048
     Dates: start: 2014
  18. VALSARTAN [Concomitant]
     Active Substance: VALSARTAN
     Indication: Hypertension
     Dosage: 80 MILLIGRAM
     Route: 048
     Dates: start: 2014
  19. OXYGEN [Concomitant]
     Active Substance: OXYGEN
     Indication: Chronic obstructive pulmonary disease
     Route: 055
     Dates: start: 2015
  20. CYANOCOBALAMIN [Concomitant]
     Active Substance: CYANOCOBALAMIN
     Indication: Vitamin supplementation
     Dosage: 1000 MILLIGRAM
     Route: 048
     Dates: start: 20180426
  21. CYANOCOBALAMIN [Concomitant]
     Active Substance: CYANOCOBALAMIN
     Dosage: 1000 MILLIGRAM
     Route: 048
     Dates: start: 20191103
  22. FLUTICASONE [Concomitant]
     Active Substance: FLUTICASONE
     Indication: Chronic obstructive pulmonary disease
     Route: 045
     Dates: start: 20180426
  23. UMECLIDINIUM BROMIDE\VILANTEROL TRIFENATATE [Concomitant]
     Active Substance: UMECLIDINIUM BROMIDE\VILANTEROL TRIFENATATE
     Indication: Chronic obstructive pulmonary disease
     Dosage: 1 PUFF
     Route: 055
     Dates: start: 20180426
  24. ZOFRAN [Concomitant]
     Active Substance: ONDANSETRON HYDROCHLORIDE
     Indication: Prophylaxis of nausea and vomiting
     Route: 048
     Dates: start: 20180427
  25. ZOFRAN [Concomitant]
     Active Substance: ONDANSETRON HYDROCHLORIDE
     Indication: Nausea
     Route: 048
     Dates: start: 20190330
  26. ZOFRAN [Concomitant]
     Active Substance: ONDANSETRON HYDROCHLORIDE
     Dosage: 8 MILLIGRAM
     Route: 048
     Dates: start: 20191103
  27. SENNA [Concomitant]
     Active Substance: SENNA LEAF\SENNOSIDES\SENNOSIDES A AND B
     Indication: Constipation
     Dosage: 2 TABLETS
     Route: 048
     Dates: start: 20180428
  28. SENNA [Concomitant]
     Active Substance: SENNA LEAF\SENNOSIDES\SENNOSIDES A AND B
     Dosage: 2 TABLETS
     Route: 048
     Dates: start: 20200919
  29. MAGNESIUM HYDROXIDE [Concomitant]
     Active Substance: MAGNESIUM HYDROXIDE
     Indication: Constipation prophylaxis
     Route: 048
     Dates: start: 20180430
  30. HYDROCORTISONE [Concomitant]
     Active Substance: HYDROCORTISONE
     Indication: Pruritus
     Route: 061
     Dates: start: 20180501
  31. PROTONIX [Concomitant]
     Active Substance: PANTOPRAZOLE SODIUM
     Indication: Prophylaxis
     Dosage: 40 MILLIGRAM
     Route: 048
     Dates: start: 20180514
  32. BENZOCAINE [Concomitant]
     Active Substance: BENZOCAINE
     Indication: Mucosal inflammation
     Dosage: 1 LOZENGE
     Route: 065
     Dates: start: 20180519
  33. LIDOCAINE [Concomitant]
     Active Substance: LIDOCAINE
     Indication: Pain
     Route: 061
     Dates: start: 20190216
  34. LIDOCAINE [Concomitant]
     Active Substance: LIDOCAINE
     Route: 062
     Dates: start: 20200926
  35. ONDANSETRON [Concomitant]
     Active Substance: ONDANSETRON
     Indication: Nausea
     Dosage: 16 MILLIGRAM
     Route: 041
     Dates: start: 20190624
  36. ONDANSETRON [Concomitant]
     Active Substance: ONDANSETRON
     Dosage: 16 MILLIGRAM
     Route: 048
     Dates: start: 20200919
  37. FAMOTIDINE [Concomitant]
     Active Substance: FAMOTIDINE
     Indication: Gastrooesophageal reflux disease
     Dosage: 20 MILLIGRAM
     Route: 048
     Dates: start: 20190824
  38. DICLOFENAC SODIUM [Concomitant]
     Active Substance: DICLOFENAC SODIUM
     Indication: Arthralgia
     Route: 061
     Dates: start: 201902
  39. MELATONIN [Concomitant]
     Active Substance: MELATONIN
     Indication: Insomnia
     Dosage: 6 MILLIGRAM
     Route: 048
     Dates: start: 20190321, end: 20191113
  40. MELATONIN [Concomitant]
     Active Substance: MELATONIN
     Dosage: 5 MILLIGRAM
     Route: 048
     Dates: start: 20191103
  41. ACYCLOVIR [Concomitant]
     Active Substance: ACYCLOVIR
     Indication: Infection prophylaxis
     Dosage: 1200 MILLIGRAM
     Route: 048
     Dates: start: 20180516, end: 20190524
  42. ACYCLOVIR [Concomitant]
     Active Substance: ACYCLOVIR
     Dosage: 800 MILLIGRAM
     Route: 048
     Dates: start: 20180524
  43. ACETAMINOPHEN [Concomitant]
     Active Substance: ACETAMINOPHEN
     Indication: Pain
     Route: 048
     Dates: start: 20190624
  44. CANNABIDIOL [Concomitant]
     Active Substance: CANNABIDIOL
     Indication: Back pain
     Dosage: UNKNOWN
     Route: 061
     Dates: start: 20190819
  45. GABAPENTIN [Concomitant]
     Active Substance: GABAPENTIN
     Indication: Neuropathy peripheral
     Route: 048
     Dates: start: 20191103, end: 20191124
  46. GABAPENTIN [Concomitant]
     Active Substance: GABAPENTIN
     Indication: Pain
     Route: 048
     Dates: start: 20200925
  47. PANTOPRAZOLE [Concomitant]
     Active Substance: PANTOPRAZOLE
     Indication: Gastrooesophageal reflux disease
     Dosage: 40 MILLIGRAM
     Route: 048
     Dates: start: 20191103
  48. ANORO ELLIPTA [Concomitant]
     Active Substance: UMECLIDINIUM BROMIDE\VILANTEROL TRIFENATATE
     Indication: Chronic obstructive pulmonary disease
     Dosage: 62.5-25 UG
     Route: 055
     Dates: start: 20191103
  49. ALBUTEROL [Concomitant]
     Active Substance: ALBUTEROL
     Indication: Dyspnoea
     Route: 055
     Dates: start: 20200501
  50. TRAMADOL [Concomitant]
     Active Substance: TRAMADOL
     Indication: Spinal fracture
     Route: 048
     Dates: start: 20200524, end: 20200805
  51. TRAMADOL [Concomitant]
     Active Substance: TRAMADOL
     Indication: Back pain
     Route: 048
     Dates: start: 20200805
  52. OXYCODONE [Concomitant]
     Active Substance: OXYCODONE
     Indication: Spinal fracture
     Route: 048
     Dates: start: 20200805
  53. OXYCODONE [Concomitant]
     Active Substance: OXYCODONE
     Route: 048
     Dates: start: 20200805
  54. FOSAMAX [Concomitant]
     Active Substance: ALENDRONATE SODIUM
     Indication: Bone loss
     Dosage: 70 MILLIGRAM
     Route: 048
     Dates: start: 20200910
  55. MILK OF MAGNESIA [Concomitant]
     Active Substance: MAGNESIUM HYDROXIDE
     Indication: Constipation
     Route: 048
     Dates: start: 20200919
  56. ENOXAPARIN [Concomitant]
     Active Substance: ENOXAPARIN
     Indication: Thrombosis prophylaxis
     Dosage: 40 MILLIGRAM
     Route: 058
     Dates: start: 20200925
  57. VANCOMYCIN [Concomitant]
     Active Substance: VANCOMYCIN
     Indication: Infection prophylaxis
     Dosage: 500 MILLIGRAM
     Route: 048
     Dates: start: 20200930
  58. VANCOMYCIN [Concomitant]
     Active Substance: VANCOMYCIN
     Indication: Clostridium difficile infection
  59. FUROSEMIDE [Concomitant]
     Active Substance: FUROSEMIDE
     Indication: Oedema
     Dosage: 20 MILLIGRAM
     Route: 048
     Dates: start: 20190824

REACTIONS (2)
  - Clostridium difficile infection [Recovered/Resolved]
  - Dysarthria [Recovered/Resolved]

NARRATIVE: CASE EVENT DATE: 20201220
